FAERS Safety Report 17484391 (Version 6)
Quarter: 2020Q4

REPORT INFORMATION
  Report Type: Spontaneous
  Country: US (occurrence: US)
  Receive Date: 20200302
  Receipt Date: 20201223
  Transmission Date: 20210113
  Serious: Yes (Other)
  Sender: FDA-Public Use
  Company Number: US-GILEAD-2020-0452915

PATIENT
  Age: 51 Year
  Sex: Male
  Weight: 88.44 kg

DRUGS (51)
  1. TRUVADA [Suspect]
     Active Substance: EMTRICITABINE\TENOFOVIR DISOPROXIL FUMARATE
     Indication: HIV INFECTION
     Dosage: UNK
     Route: 048
     Dates: start: 20090225, end: 20100809
  2. ASPIRIN [ACETYLSALICYLIC ACID] [Concomitant]
     Active Substance: ASPIRIN
  3. PREDNISONE. [Concomitant]
     Active Substance: PREDNISONE
  4. COMBIVIR [Concomitant]
     Active Substance: LAMIVUDINE\ZIDOVUDINE
     Indication: HIV INFECTION
  5. EDURANT [Concomitant]
     Active Substance: RILPIVIRINE HYDROCHLORIDE
     Indication: HIV INFECTION
  6. IBUPROFEN. [Concomitant]
     Active Substance: IBUPROFEN
  7. VALTREX [Concomitant]
     Active Substance: VALACYCLOVIR HYDROCHLORIDE
  8. MACROBID [CLARITHROMYCIN] [Concomitant]
     Active Substance: CLARITHROMYCIN
  9. AZT [Concomitant]
     Active Substance: ZIDOVUDINE
     Indication: HIV INFECTION
  10. TRUVADA [Suspect]
     Active Substance: EMTRICITABINE\TENOFOVIR DISOPROXIL FUMARATE
     Dosage: UNK
     Route: 065
     Dates: start: 20081203, end: 20100809
  11. PENICILLIN [PENICILLIN NOS] [Concomitant]
     Active Substance: PENICILLIN
  12. VISIPAQUE [Concomitant]
     Active Substance: IODIXANOL
  13. CEFTRIAXONE. [Concomitant]
     Active Substance: CEFTRIAXONE
  14. INFLUENZA VACCINE [Concomitant]
     Active Substance: INFLUENZA VIRUS VACCINE
  15. FLEXERIL [CEFIXIME] [Concomitant]
     Active Substance: CEFIXIME
  16. TRAMADOL. [Concomitant]
     Active Substance: TRAMADOL
  17. SUSTIVA [Concomitant]
     Active Substance: EFAVIRENZ
     Indication: HIV INFECTION
  18. PROZAC [Concomitant]
     Active Substance: FLUOXETINE HYDROCHLORIDE
  19. HEPATITIS A VACCINE [Concomitant]
     Active Substance: HEPATITIS A VIRUS STRAIN HM175 ANTIGEN (FORMALDEHYDE INACTIVATED)
  20. HYDROCORTISONE. [Concomitant]
     Active Substance: HYDROCORTISONE
  21. SENNA S [Concomitant]
     Active Substance: DOCUSATE SODIUM\SENNA LEAF
  22. DITROPAN [Concomitant]
     Active Substance: OXYBUTYNIN CHLORIDE
  23. CIALIS [Concomitant]
     Active Substance: TADALAFIL
  24. MACROBID [CLARITHROMYCIN] [Concomitant]
     Active Substance: CLARITHROMYCIN
  25. GLUCOSAMINE CHONDROITIN [CHONDROITIN SULFATE;GLUCOSAMINE] [Concomitant]
  26. AMOXICILLIN. [Concomitant]
     Active Substance: AMOXICILLIN
  27. CORTISONE [Concomitant]
     Active Substance: CORTISONE
  28. VANCOMYCIN [Concomitant]
     Active Substance: VANCOMYCIN
  29. ISENTRESS [Concomitant]
     Active Substance: RALTEGRAVIR POTASSIUM
     Indication: HIV INFECTION
  30. KALETRA [Concomitant]
     Active Substance: LOPINAVIR\RITONAVIR
     Indication: HIV INFECTION
  31. ZIAGEN [Concomitant]
     Active Substance: ABACAVIR SULFATE
     Indication: HIV INFECTION
  32. TRUVADA [Suspect]
     Active Substance: EMTRICITABINE\TENOFOVIR DISOPROXIL FUMARATE
     Dosage: UNK
     Route: 048
     Dates: start: 20090225, end: 20100809
  33. BACTRIM [Concomitant]
     Active Substance: SULFAMETHOXAZOLE\TRIMETHOPRIM
  34. FLOMAX RELIEF [Concomitant]
     Active Substance: TAMSULOSIN HYDROCHLORIDE
  35. ACETAMINOPHEN. [Concomitant]
     Active Substance: ACETAMINOPHEN
  36. CIPROFLOXACIN. [Concomitant]
     Active Substance: CIPROFLOXACIN
  37. MECLIZINE [Concomitant]
     Active Substance: MECLIZINE HYDROCHLORIDE
  38. REYATAZ [Concomitant]
     Active Substance: ATAZANAVIR SULFATE
     Indication: HIV INFECTION
  39. TIVICAY [Concomitant]
     Active Substance: DOLUTEGRAVIR SODIUM
     Indication: HIV INFECTION
  40. VIRAMUNE [Concomitant]
     Active Substance: NEVIRAPINE
     Indication: HIV INFECTION
  41. LIVALO [Concomitant]
     Active Substance: PITAVASTATIN CALCIUM
  42. TYLENOL WITH CODEINE [Concomitant]
     Active Substance: ACETAMINOPHEN\CODEINE PHOSPHATE
  43. LEVOFLOXACIN. [Concomitant]
     Active Substance: LEVOFLOXACIN
  44. MARINOL [Concomitant]
     Active Substance: DRONABINOL
  45. FLEET ENEMA [Concomitant]
     Active Substance: SODIUM PHOSPHATE, DIBASIC\SODIUM PHOSPHATE, MONOBASIC
  46. OMEPRAZOLE. [Concomitant]
     Active Substance: OMEPRAZOLE
  47. TETRACYCLINE [Concomitant]
     Active Substance: TETRACYCLINE
  48. NORVIR [Concomitant]
     Active Substance: RITONAVIR
     Indication: HIV INFECTION
  49. SINEMET [Concomitant]
     Active Substance: CARBIDOPA\LEVODOPA
  50. COLACE [Concomitant]
     Active Substance: DOCUSATE SODIUM
  51. PEGINTERFERON ALFA-2A;RIBAVIRIN [Concomitant]

REACTIONS (16)
  - Renal impairment [Unknown]
  - Anxiety [Unknown]
  - Bone density decreased [Unknown]
  - Anhedonia [Unknown]
  - Emotional distress [Unknown]
  - Fear of falling [Unknown]
  - Osteoporosis [Not Recovered/Not Resolved]
  - Physical disability [Unknown]
  - Osteopenia [Not Recovered/Not Resolved]
  - Tooth fracture [Unknown]
  - Pain [Unknown]
  - Economic problem [Unknown]
  - Condition aggravated [Unknown]
  - Loss of personal independence in daily activities [Unknown]
  - Nephrolithiasis [Unknown]
  - Tooth loss [Unknown]

NARRATIVE: CASE EVENT DATE: 200909
